FAERS Safety Report 9357729 (Version 1)
Quarter: 2013Q2

REPORT INFORMATION
  Report Type: Spontaneous
  Country: FR (occurrence: FR)
  Receive Date: 20130620
  Receipt Date: 20130620
  Transmission Date: 20140414
  Serious: Yes (Hospitalization)
  Sender: FDA-Public Use
  Company Number: FR-PFIZER INC-2013180622

PATIENT
  Age: 53 Year
  Sex: Male

DRUGS (11)
  1. SUTENT [Suspect]
     Indication: RENAL CANCER
     Dosage: UNK
     Route: 048
     Dates: start: 20120816, end: 20130417
  2. PANTOPRAZOLE SANDOZ [Suspect]
     Dosage: 20 MG, UNK
     Route: 048
     Dates: start: 201211, end: 20130417
  3. FUROSEMIDE TEVA [Suspect]
     Dosage: 40 MG, 1X/DAY
     Route: 048
     Dates: start: 20130305, end: 20130417
  4. COAPROVEL [Suspect]
     Dosage: UNK
     Route: 048
     Dates: start: 20121002
  5. JANUMET [Concomitant]
     Dosage: 1 DF, 1X/DAY
     Dates: start: 201104
  6. DIAMICRON [Concomitant]
     Dosage: 120 MG, 1X/DAY IN THE MORNING
     Dates: start: 201104
  7. LANTUS [Concomitant]
     Dosage: 16 IU, 1X/DAY IN THE EVENING
     Dates: start: 201203
  8. NOVORAPID [Concomitant]
     Dosage: UNK
     Dates: start: 201209
  9. AMLOR [Concomitant]
     Dosage: 10 MG, UNK
     Dates: start: 201107
  10. NEO-CODION TABLETS [Concomitant]
     Dosage: UNK
     Dates: start: 20130412
  11. LEVOTHYROX [Concomitant]
     Dosage: UNK
     Dates: start: 20121215

REACTIONS (3)
  - Diabetes mellitus inadequate control [Unknown]
  - Hypertriglyceridaemia [Recovering/Resolving]
  - Hypercholesterolaemia [Recovering/Resolving]
